FAERS Safety Report 8512256-4 (Version None)
Quarter: 2012Q3

REPORT INFORMATION
  Report Type: 
  Country: None (occurrence: None)
  Receive Date: 20120716
  Receipt Date: 20120710
  Transmission Date: 20120928
  Serious: Yes (Death, Other)
  Sender: FDA-Public Use
  Company Number: PHHY2012FR059417

PATIENT
  Sex: Female

DRUGS (18)
  1. GENTAMICIN [Interacting]
  2. VANCOMYCIN [Interacting]
     Dosage: 1800 MG, UNK
     Dates: start: 20120606
  3. VANCOMYCIN [Interacting]
     Dosage: 2000 MG, UNK
     Dates: start: 20120604
  4. NEORAL [Interacting]
     Dosage: 1 DF, BID
     Route: 048
     Dates: start: 20120423
  5. VFEND [Interacting]
     Indication: BRONCHOPULMONARY ASPERGILLOSIS
     Dosage: 1 DF, BID
     Dates: start: 20120514, end: 20120531
  6. VANCOMYCIN [Interacting]
     Dosage: 2000 MG, UNK
     Dates: start: 20120525
  7. COLISTIN [Concomitant]
     Dosage: 1700 IU, UNK
  8. VANCOMYCIN [Interacting]
     Dosage: 2250 MG, UNK
     Dates: start: 20120531
  9. NEUPOGEN [Concomitant]
     Indication: ASPERGILLOSIS
     Dates: start: 20120401, end: 20120607
  10. BACTRIM [Suspect]
     Indication: PROPHYLAXIS
     Dosage: 1 DF, QW3
     Route: 042
     Dates: start: 20120401
  11. ATGAM [Suspect]
     Dosage: 40 MG/KG, UNK
     Dates: start: 20120423
  12. VFEND [Interacting]
     Route: 048
  13. CLAVULANATE POTASSIUM [Suspect]
     Dosage: UNK
     Dates: start: 20120604
  14. CIPROFLOXACIN [Suspect]
     Dates: start: 20120528, end: 20120606
  15. CANCIDAS [Suspect]
     Route: 042
     Dates: start: 20120528, end: 20120530
  16. ATGAM [Suspect]
     Dosage: 40 MG/KG, UNK
     Dates: start: 20120425, end: 20120427
  17. VANCOMYCIN [Interacting]
     Dosage: 1 G, BID
     Dates: start: 20120522
  18. CLAVULANATE POTASSIUM [Suspect]
     Dosage: 1 DF, TID
     Dates: start: 20120528, end: 20120601

REACTIONS (10)
  - MULTIPLE DRUG OVERDOSE [None]
  - RENAL IMPAIRMENT [None]
  - BONE MARROW FAILURE [None]
  - HYPERSENSITIVITY [None]
  - RENAL FAILURE ACUTE [None]
  - DRUG INTERACTION [None]
  - GENERALISED OEDEMA [None]
  - BRONCHOPULMONARY ASPERGILLOSIS [None]
  - HEPATIC FAILURE [None]
  - IMMUNOSUPPRESSANT DRUG LEVEL DECREASED [None]
